FAERS Safety Report 20110674 (Version 3)
Quarter: 2022Q1

REPORT INFORMATION
  Report Type: Spontaneous
  Country: NL (occurrence: NL)
  Receive Date: 20211124
  Receipt Date: 20220218
  Transmission Date: 20220423
  Serious: Yes (Life-Threatening, Hospitalization)
  Sender: FDA-Public Use
  Company Number: None

PATIENT
  Sex: Female
  Weight: 115 kg

DRUGS (5)
  1. AMOXICILLIN\CLAVULANIC ACID [Suspect]
     Active Substance: AMOXICILLIN\CLAVULANIC ACID
     Indication: Cholangitis infective
     Dosage: 3600 MILLIGRAM DAILY; FORM STRENGTH:500/50MG / BRAND NAME NOT SPECIFIED, 3DD 1200MG IV
     Route: 042
     Dates: start: 20211021, end: 20211021
  2. POLYETHYLENE GLYCOLS [Concomitant]
     Active Substance: POLYETHYLENE GLYCOLS
     Dosage: MACROGOL/SALTS PDR V BEVERAGE (MOVIC/MOLAX/LAXT/GEN) / BRAND NAME NOT SPECIFIED ,THERAPY START DATE
  3. OMEPRAZOLE [Concomitant]
     Active Substance: OMEPRAZOLE
     Dosage: 20 MG (MILLIGRAM) , MSR 20MG / BRAND NAME NOT SPECIFIED,THERAPY START DATE :ASKU,THERAPY END DATE :
  4. OXYCODONE [Concomitant]
     Active Substance: OXYCODONE
     Dosage: 5 MG (MILLIGRAM),THERAPY START DATE :ASKU,THERAPY END DATE :ASKU, BRAND NAME NOT SPECIFIED
  5. CHOLECALCIFEROL [Concomitant]
     Active Substance: CHOLECALCIFEROL
     Dosage: 5600 UNITS, THERAPY START DATE :ASKU,THERAPY END DATE :ASKU ,BRAND NAME NOT SPECIFIED

REACTIONS (1)
  - Anaphylactic shock [Recovered/Resolved]
